FAERS Safety Report 6022173-X (Version None)
Quarter: 2008Q4

REPORT INFORMATION
  Report Type: 
  Country: None (occurrence: None)
  Receive Date: 20081229
  Receipt Date: 20081224
  Transmission Date: 20090506
  Serious: Yes (Life-Threatening, Hospitalization, Other)
  Sender: FDA-Public Use
  Company Number: JP-B.I. PHARMACEUTICALS,INC./RIDGEFIELD-2008-BP-15584NB

PATIENT
  Sex: Male
  Weight: 50.15 kg

DRUGS (5)
  1. SPIRIVA [Suspect]
     Indication: CHRONIC OBSTRUCTIVE PULMONARY DISEASE
     Dosage: 18MCG
     Route: 055
     Dates: end: 20081003
  2. SPIRIVA [Suspect]
     Indication: EMPHYSEMA
  3. HOKUNALIN [Concomitant]
     Indication: CHRONIC OBSTRUCTIVE PULMONARY DISEASE
     Route: 062
  4. CEFAMEZIN ALPHA [Concomitant]
     Indication: INFECTION PROPHYLAXIS
     Dosage: 2G
     Route: 042
     Dates: start: 20080922, end: 20080925
  5. GASTER [Concomitant]
     Indication: GASTRIC ULCER
     Dosage: 2ANZ
     Route: 042

REACTIONS (7)
  - CONSTIPATION [None]
  - GASTRIC CANCER [None]
  - ILEUS PARALYTIC [None]
  - MECHANICAL ILEUS [None]
  - OESOPHAGEAL ULCER [None]
  - PNEUMONIA ASPIRATION [None]
  - RESPIRATORY DISORDER [None]
